FAERS Safety Report 13287283 (Version 2)
Quarter: 2017Q2

REPORT INFORMATION
  Report Type: Report from Study
  Country: None (occurrence: US)
  Receive Date: 20170302
  Receipt Date: 20170404
  Transmission Date: 20170830
  Serious: Yes (Hospitalization, Other)
  Sender: FDA-Public Use
  Company Number: US-ABBVIE-17K-163-1840096-00

PATIENT
  Age: 78 Year
  Sex: Female
  Weight: 59.02 kg

DRUGS (2)
  1. HUMIRA [Suspect]
     Active Substance: ADALIMUMAB
     Indication: COLITIS ULCERATIVE
     Route: 058
     Dates: start: 20160818, end: 20161125
  2. HUMIRA [Suspect]
     Active Substance: ADALIMUMAB
     Indication: CROHN^S DISEASE

REACTIONS (10)
  - Post procedural discharge [Recovering/Resolving]
  - Surgical failure [Unknown]
  - Ileostomy closure [Unknown]
  - Intestinal obstruction [Unknown]
  - Crohn^s disease [Unknown]
  - Weight decreased [Recovering/Resolving]
  - Bone abscess [Unknown]
  - Weight decreased [Unknown]
  - Faeces soft [Recovering/Resolving]
  - Crohn^s disease [Recovering/Resolving]

NARRATIVE: CASE EVENT DATE: 2016
